FAERS Safety Report 5141679-9 (Version None)
Quarter: 2006Q4

REPORT INFORMATION
  Report Type: 
  Country: None (occurrence: None)
  Receive Date: 20061026
  Receipt Date: 20061019
  Transmission Date: 20070319
  Serious: Yes (Hospitalization)
  Sender: FDA-Public Use
  Company Number: 163-20785-06100949

PATIENT
  Age: 63 Year
  Sex: Female

DRUGS (3)
  1. THALOMID [Suspect]
     Indication: MULTIPLE MYELOMA
     Dosage: 200 MG, DAILY, ORAL; SEE IMAGE
     Route: 048
     Dates: start: 20050224, end: 20050425
  2. THALOMID [Suspect]
     Indication: MULTIPLE MYELOMA
     Dosage: 200 MG, DAILY, ORAL; SEE IMAGE
     Route: 048
     Dates: start: 20050426, end: 20050524
  3. THALOMID [Suspect]
     Indication: MULTIPLE MYELOMA
     Dosage: 200 MG, DAILY, ORAL; SEE IMAGE
     Route: 048
     Dates: start: 20050525, end: 20061002

REACTIONS (5)
  - MALIGNANT NEOPLASM PROGRESSION [None]
  - MULTIPLE MYELOMA [None]
  - PROTEIN TOTAL INCREASED [None]
  - PYREXIA [None]
  - URINARY TRACT INFECTION [None]
